FAERS Safety Report 10186667 (Version 1)
Quarter: 2014Q2

REPORT INFORMATION
  Report Type: Spontaneous
  Country: US (occurrence: US)
  Receive Date: 20140521
  Receipt Date: 20140521
  Transmission Date: 20141212
  Serious: Yes (Other)
  Sender: FDA-Public Use
  Company Number: US-MYLANLABS-2014S1010790

PATIENT
  Age: 29 Year
  Sex: Female

DRUGS (1)
  1. LEVETIRACETAM [Suspect]
     Indication: IDIOPATHIC GENERALISED EPILEPSY
     Route: 065

REACTIONS (3)
  - Idiopathic generalised epilepsy [Recovered/Resolved]
  - Condition aggravated [Recovered/Resolved]
  - Exposure during pregnancy [Recovered/Resolved]
